FAERS Safety Report 9160131 (Version 1)
Quarter: 2013Q1

REPORT INFORMATION
  Report Type: Spontaneous
  Country: US (occurrence: None)
  Receive Date: 20130214
  Receipt Date: 20130214
  Transmission Date: 20140127
  Serious: Yes (Other)
  Sender: FDA-Public Use
  Company Number: 2013MA000521

PATIENT
  Age: 51 Year
  Sex: Female

DRUGS (6)
  1. GABAPENTIN [Suspect]
     Indication: NEURALGIA
     Route: 048
  2. TRAMADOL HYDROCHLORIDE TABLETS, 50 MG (PUREPAC) (TRAMADOL) [Suspect]
     Route: 048
  3. TYLENOL [Suspect]
  4. ADVIL [Suspect]
     Route: 048
  5. PROPOXYPHENE NAPSYLATE [Concomitant]
  6. DARVOCET-N [Concomitant]

REACTIONS (11)
  - Dizziness [None]
  - Drug ineffective [None]
  - Knee operation [None]
  - Hip surgery [None]
  - Spinal operation [None]
  - Surgery [None]
  - Intestinal obstruction [None]
  - Burning sensation [None]
  - Condition aggravated [None]
  - Restlessness [None]
  - Dysstasia [None]
